FAERS Safety Report 11706236 (Version 2)
Quarter: 2015Q4

REPORT INFORMATION
  Report Type: Spontaneous
  Country: US (occurrence: US)
  Receive Date: 20151104
  Receipt Date: 20151110
  Transmission Date: 20160304
  Serious: No
  Sender: FDA-Public Use
  Company Number: US-ELI_LILLY_AND_COMPANY-US201101000757

PATIENT
  Age: 59 Year
  Sex: Female

DRUGS (11)
  1. BACTROBAN [Concomitant]
     Active Substance: MUPIROCIN\MUPIROCIN CALCIUM
  2. METHOTREXATE [Concomitant]
     Active Substance: METHOTREXATE
  3. VALTREX [Concomitant]
     Active Substance: VALACYCLOVIR HYDROCHLORIDE
  4. ENBREL [Concomitant]
     Active Substance: ETANERCEPT
  5. FORTEO [Suspect]
     Active Substance: TERIPARATIDE
     Indication: OSTEOPOROSIS
     Dosage: 20 UG, DAILY (1/D)
     Route: 065
     Dates: start: 20101119
  6. FORTEO [Suspect]
     Active Substance: TERIPARATIDE
     Dosage: 20 UG, DAILY (1/D)
     Route: 065
  7. FORTEO [Suspect]
     Active Substance: TERIPARATIDE
     Dosage: 20 UG, QD
  8. FORTEO [Suspect]
     Active Substance: TERIPARATIDE
     Dosage: 20 UG, DAILY (1/D)
     Route: 065
  9. FORTEO [Suspect]
     Active Substance: TERIPARATIDE
     Dosage: 20 UG, QD
     Route: 065
  10. FORTEO [Suspect]
     Active Substance: TERIPARATIDE
     Dosage: 20 UG, QD
     Route: 065
  11. FORTEO [Suspect]
     Active Substance: TERIPARATIDE
     Dosage: 20 UG, QD
     Route: 065

REACTIONS (17)
  - Infection [Recovered/Resolved]
  - Movement disorder [Recovering/Resolving]
  - Pain in extremity [Recovering/Resolving]
  - Gallbladder disorder [Unknown]
  - Oral disorder [Unknown]
  - Abdominal discomfort [Unknown]
  - Fear [Unknown]
  - Gastric disorder [Unknown]
  - Gallbladder non-functioning [Unknown]
  - Abdominal pain [Unknown]
  - Epistaxis [Recovered/Resolved]
  - Oral herpes [Recovering/Resolving]
  - Rhinorrhoea [Recovered/Resolved]
  - Haematoma [Unknown]
  - Nasal congestion [Recovered/Resolved]
  - Intentional product misuse [Unknown]
  - Malaise [Unknown]

NARRATIVE: CASE EVENT DATE: 20110106
